FAERS Safety Report 8935856 (Version 1)
Quarter: 2012Q4

REPORT INFORMATION
  Report Type: 
  Country: FR (occurrence: FR)
  Receive Date: 20121130
  Receipt Date: 20121130
  Transmission Date: 20130627
  Serious: Yes (Hospitalization)
  Sender: FDA-Public Use
  Company Number: FR-BRISTOL-MYERS SQUIBB COMPANY-17141847

PATIENT
  Age: 54 Year
  Sex: Male

DRUGS (4)
  1. BARACLUDE TABS 0.5 MG [Suspect]
     Indication: CHRONIC HEPATITIS B
     Dosage: 1DF:1 tab
     Dates: start: 20121113
  2. ALDACTONE [Concomitant]
  3. LASILIX [Concomitant]
  4. CLAMOXYL [Concomitant]

REACTIONS (1)
  - Abdominal pain [Recovered/Resolved]
